FAERS Safety Report 8207913-3 (Version None)
Quarter: 2012Q1

REPORT INFORMATION
  Report Type: 
  Country: None (occurrence: None)
  Receive Date: 20120314
  Receipt Date: 20120308
  Transmission Date: 20120608
  Serious: Yes (Hospitalization)
  Sender: FDA-Public Use
  Company Number: DE-ABBOTT-12P-062-0913201-00

PATIENT
  Age: 59 Year
  Sex: Male
  Weight: 95 kg

DRUGS (4)
  1. KALETRA [Suspect]
     Indication: HIV INFECTION
     Dates: start: 20100204
  2. METHADON HCL TAB [Concomitant]
     Indication: PRODUCT USED FOR UNKNOWN INDICATION
  3. ABACAVIR SULFATE/LAMIVUDINE [Concomitant]
     Indication: HIV INFECTION
     Dates: start: 20100204
  4. MARAVIROC [Concomitant]
     Indication: HIV INFECTION
     Dosage: 150 MG DAILY DOSE
     Dates: start: 20100204

REACTIONS (1)
  - OSTEOARTHRITIS [None]
